FAERS Safety Report 12114529 (Version 2)
Quarter: 2016Q1

REPORT INFORMATION
  Report Type: Spontaneous
  Country: JP (occurrence: JP)
  Receive Date: 20160225
  Receipt Date: 20160317
  Transmission Date: 20160526
  Serious: Yes (Hospitalization, Other)
  Sender: FDA-Public Use
  Company Number: JP-VIIV HEALTHCARE LIMITED-JP2016JPN025042

PATIENT
  Age: 68 Year
  Sex: Female
  Weight: 57.8 kg

DRUGS (3)
  1. HEPSERA [Suspect]
     Active Substance: ADEFOVIR DIPIVOXIL
     Dosage: UNK, QOD
     Route: 048
  2. ZEFIX [Concomitant]
     Active Substance: LAMIVUDINE
     Route: 048
  3. HEPSERA [Suspect]
     Active Substance: ADEFOVIR DIPIVOXIL
     Indication: CHRONIC HEPATITIS B
     Dosage: 10 MG, UNK
     Route: 048
     Dates: start: 200505

REACTIONS (8)
  - Gait disturbance [Unknown]
  - Fanconi syndrome acquired [Recovered/Resolved]
  - Renal tubular disorder [Unknown]
  - Femur fracture [Recovered/Resolved]
  - Bone pain [Unknown]
  - Hypophosphataemia [Recovered/Resolved]
  - Osteomalacia [Recovered/Resolved]
  - Pain in extremity [Recovering/Resolving]

NARRATIVE: CASE EVENT DATE: 20131219
